FAERS Safety Report 11365216 (Version 4)
Quarter: 2016Q1

REPORT INFORMATION
  Report Type: Report from Study
  Country: BR (occurrence: BR)
  Receive Date: 20150811
  Receipt Date: 20160302
  Transmission Date: 20160525
  Serious: Yes (Hospitalization, Other)
  Sender: FDA-Public Use
  Company Number: PHHY2015BR089972

PATIENT
  Sex: Female
  Weight: 71 kg

DRUGS (2)
  1. GLIVEC [Suspect]
     Active Substance: IMATINIB MESYLATE
     Dosage: 600 MG, QD (1 TABLET OF 400 MG AFTER LUNCH AND 2 TABLETS OF 100 MG AFTER DINNER)
     Route: 048
     Dates: start: 200308
  2. GLIVEC [Suspect]
     Active Substance: IMATINIB MESYLATE
     Indication: CHRONIC MYELOID LEUKAEMIA
     Dosage: 800 MG, UNK
     Route: 065

REACTIONS (28)
  - Cholelithiasis [Unknown]
  - Eyelid disorder [Recovering/Resolving]
  - Anaemia [Unknown]
  - Diarrhoea [Unknown]
  - Liver disorder [Unknown]
  - Eye inflammation [Recovering/Resolving]
  - Malaise [Unknown]
  - Increased appetite [Unknown]
  - Abdominal pain upper [Recovering/Resolving]
  - Anxiety [Unknown]
  - Oesophagitis [Recovering/Resolving]
  - Hyperhidrosis [Unknown]
  - Pancreatitis [Unknown]
  - Weight decreased [Unknown]
  - Eye swelling [Recovering/Resolving]
  - Ocular hyperaemia [Recovering/Resolving]
  - Cough [Unknown]
  - Body height decreased [Unknown]
  - Food intolerance [Unknown]
  - Gastrointestinal inflammation [Unknown]
  - Retching [Unknown]
  - Dysgeusia [Unknown]
  - Vomiting [Unknown]
  - Labyrinthitis [Recovering/Resolving]
  - Nasopharyngitis [Unknown]
  - Parosmia [Unknown]
  - Feeling abnormal [Unknown]
  - Blood pressure increased [Unknown]
